FAERS Safety Report 23139902 (Version 1)
Quarter: 2023Q4

REPORT INFORMATION
  Report Type: Spontaneous
  Country: US (occurrence: None)
  Receive Date: 20231102
  Receipt Date: 20231102
  Transmission Date: 20240109
  Serious: Yes (Other)
  Sender: FDA-Public Use
  Company Number: None

PATIENT
  Age: 57 Year
  Sex: Female
  Weight: 140.16 kg

DRUGS (1)
  1. RYSTIGGO [Suspect]
     Active Substance: ROZANOLIXIZUMAB-NOLI
     Dosage: FREQUENCY : WEEKLY;?
     Route: 058
     Dates: start: 20231018

REACTIONS (3)
  - Sinus headache [None]
  - Facial pain [None]
  - Neck pain [None]

NARRATIVE: CASE EVENT DATE: 20231101
